FAERS Safety Report 15394658 (Version 1)
Quarter: 2018Q3

REPORT INFORMATION
  Report Type: Spontaneous
  Country: US (occurrence: US)
  Receive Date: 20180918
  Receipt Date: 20180918
  Transmission Date: 20181010
  Serious: Yes (Hospitalization)
  Sender: FDA-Public Use
  Company Number: US-B.I. PHARMACEUTICALS,INC./RIDGEFIELD-2018-BI-045304

PATIENT
  Age: 78 Year
  Sex: Female

DRUGS (2)
  1. SPIOLTO [Suspect]
     Active Substance: OLODATEROL HYDROCHLORIDE\TIOTROPIUM BROMIDE MONOHYDRATE
     Indication: CHRONIC OBSTRUCTIVE PULMONARY DISEASE
     Dosage: 2 PUFFS A DAY;  STRENGTH: 2.5 MCG; FORMULATION: INHALATION SPRAY?ACTION(S) TAKEN T: DOSE NOT CHANGED
     Route: 055
     Dates: start: 2017
  2. PROAIR HFA [Concomitant]
     Active Substance: ALBUTEROL SULFATE
     Indication: CHRONIC OBSTRUCTIVE PULMONARY DISEASE
     Dosage: 2 PUFFS A DAY;  FORMULATION: INHALATION SPRAY;
     Route: 055
     Dates: start: 2017

REACTIONS (7)
  - Atrioventricular block [Recovered/Resolved]
  - Visual impairment [Not Recovered/Not Resolved]
  - Tremor [Not Recovered/Not Resolved]
  - Chronic obstructive pulmonary disease [Unknown]
  - Rhinorrhoea [Not Recovered/Not Resolved]
  - Mental disorder [Unknown]
  - Anxiety [Unknown]

NARRATIVE: CASE EVENT DATE: 201803
